FAERS Safety Report 13284083 (Version 5)
Quarter: 2017Q4

REPORT INFORMATION
  Report Type: Report from Study
  Country: DE (occurrence: DE)
  Receive Date: 20170301
  Receipt Date: 20171025
  Transmission Date: 20180320
  Serious: Yes (Hospitalization)
  Sender: FDA-Public Use
  Company Number: DE-BIOGEN-2017BI00362666

PATIENT
  Sex: Female
  Weight: 98 kg

DRUGS (6)
  1. VALPROAT CHRONO WINTH [Concomitant]
     Route: 048
  2. ATORVASTATIN [Concomitant]
     Active Substance: ATORVASTATIN
     Indication: HYPERCHOLESTEROLAEMIA
     Route: 048
  3. TYSABRI [Suspect]
     Active Substance: NATALIZUMAB
     Indication: MULTIPLE SCLEROSIS
     Route: 042
     Dates: start: 20081022, end: 20170130
  4. TYSABRI [Suspect]
     Active Substance: NATALIZUMAB
     Route: 042
  5. TYSABRI [Suspect]
     Active Substance: NATALIZUMAB
     Route: 065
     Dates: start: 2007
  6. VALPROAT CHRONO WINTH [Concomitant]
     Indication: EPILEPSY
     Route: 048
     Dates: start: 20130130

REACTIONS (3)
  - Epilepsy [Recovered/Resolved]
  - Diarrhoea [Unknown]
  - Contrast media allergy [Unknown]
